FAERS Safety Report 7309083-2 (Version None)
Quarter: 2011Q1

REPORT INFORMATION
  Report Type: 
  Country: None (occurrence: None)
  Receive Date: 20110223
  Receipt Date: 20110125
  Transmission Date: 20110831
  Serious: Yes (Death)
  Sender: FDA-Public Use
  Company Number: US-TYCO HEALTHCARE/MALLINCKRODT-T201100223

PATIENT
  Age: 35 Year
  Sex: Female

DRUGS (5)
  1. OXYCODONE [Suspect]
     Route: 048
  2. DIPHENHYDRAMINE [Suspect]
     Route: 048
  3. VENLAFAXINE [Suspect]
     Route: 048
  4. CYCLOBENZAPRINE [Suspect]
     Route: 048
  5. HYDROMORPHONE [Suspect]
     Route: 048

REACTIONS (1)
  - DEATH [None]
